FAERS Safety Report 18573271 (Version 1)
Quarter: 2020Q4

REPORT INFORMATION
  Report Type: Spontaneous
  Country: DE (occurrence: DE)
  Receive Date: 20201203
  Receipt Date: 20201203
  Transmission Date: 20210114
  Serious: Yes (Hospitalization)
  Sender: FDA-Public Use
  Company Number: DE-TEVA-2020-DE-1854196

PATIENT
  Age: 15 Year
  Sex: Female
  Weight: 60 kg

DRUGS (4)
  1. MIRTAZAPIN [Suspect]
     Active Substance: MIRTAZAPINE
     Indication: SUICIDAL IDEATION
     Dosage: 0-0-X
     Route: 048
     Dates: start: 20181118
  2. AMITRIPTYLIN [Suspect]
     Active Substance: AMITRIPTYLINE
     Indication: SUICIDAL IDEATION
     Dosage: 0-0-X
     Route: 048
     Dates: start: 20181118
  3. SUMATRIPTAN. [Suspect]
     Active Substance: SUMATRIPTAN
     Indication: SUICIDAL IDEATION
     Dosage: 0-0-X
     Route: 048
     Dates: start: 20181118
  4. RIZATRIPTAN. [Suspect]
     Active Substance: RIZATRIPTAN
     Indication: SUICIDAL IDEATION
     Dosage: 0-0-X
     Route: 048
     Dates: start: 20181118

REACTIONS (5)
  - Sopor [Unknown]
  - Intentional overdose [Unknown]
  - Acute respiratory failure [Unknown]
  - Toxicity to various agents [Unknown]
  - Somnolence [Unknown]

NARRATIVE: CASE EVENT DATE: 20181118
